FAERS Safety Report 10506918 (Version 1)
Quarter: 2014Q4

REPORT INFORMATION
  Report Type: Report from Study
  Country: US (occurrence: US)
  Receive Date: 20141009
  Receipt Date: 20141009
  Transmission Date: 20150528
  Serious: Yes (Hospitalization)
  Sender: FDA-Public Use
  Company Number: US-SA-2014SA135571

PATIENT
  Age: 70 Year
  Sex: Female

DRUGS (3)
  1. LANTUS SOLOSTAR [Suspect]
     Active Substance: INSULIN GLARGINE
     Indication: TYPE 2 DIABETES MELLITUS
     Dosage: FORM: VIAL DOSE:25 UNIT(S)
     Route: 065
  2. SOLOSTAR [Concomitant]
     Active Substance: DEVICE
     Indication: TYPE 2 DIABETES MELLITUS
  3. APIDRA [Concomitant]
     Active Substance: INSULIN GLULISINE
     Dosage: BEFORE EVERY MEAL ON A SLIDING SCALE

REACTIONS (3)
  - Feeling abnormal [Unknown]
  - Aphonia [Unknown]
  - Wound infection staphylococcal [Recovered/Resolved]

NARRATIVE: CASE EVENT DATE: 201408
